FAERS Safety Report 10465788 (Version 2)
Quarter: 2014Q3

REPORT INFORMATION
  Report Type: Spontaneous
  Country: IT (occurrence: IT)
  Receive Date: 20140921
  Receipt Date: 20140925
  Transmission Date: 20150326
  Serious: Yes (Hospitalization)
  Sender: FDA-Public Use
  Company Number: PHHY2014IT117528

PATIENT
  Age: 81 Year
  Sex: Female

DRUGS (7)
  1. CATAPRESSAN TTS [Concomitant]
     Active Substance: CLONIDINE
     Dosage: UNK UKN, UNK
     Route: 062
  2. FOSICOMBI [Concomitant]
     Active Substance: FOSINOPRIL SODIUM\HYDROCHLOROTHIAZIDE
     Dosage: UNK UKN, UNK
  3. LORMETAZEPAM [Suspect]
     Active Substance: LORMETAZEPAM
     Indication: DRUG ABUSE
     Dosage: UNK UKN, UNK
     Route: 048
     Dates: start: 20140906, end: 20140906
  4. MIRTAZAPINE. [Concomitant]
     Active Substance: MIRTAZAPINE
     Dosage: UNK UKN, UNK
  5. TEGRETOL [Suspect]
     Active Substance: CARBAMAZEPINE
     Indication: DRUG ABUSE
     Dosage: UNK UKN, UNK
     Route: 048
     Dates: start: 20140906, end: 20140906
  6. PARACETAMOL [Suspect]
     Active Substance: ACETAMINOPHEN
     Indication: DRUG ABUSE
     Dosage: UNK UKN, UNK
     Route: 048
     Dates: start: 20140906, end: 20140906
  7. CARDURA [Concomitant]
     Active Substance: DOXAZOSIN MESYLATE
     Dosage: UNK UKN, UNK

REACTIONS (4)
  - Drug abuse [Recovered/Resolved]
  - Somnolence [Recovered/Resolved]
  - Hypokalaemia [Recovered/Resolved]
  - Electrocardiogram QT prolonged [Recovered/Resolved]

NARRATIVE: CASE EVENT DATE: 20140906
